FAERS Safety Report 8824665 (Version 2)
Quarter: 2012Q4

REPORT INFORMATION
  Report Type: 
  Country: AU (occurrence: AU)
  Receive Date: 20121004
  Receipt Date: 20121213
  Transmission Date: 20130627
  Serious: Yes (Hospitalization, Other)
  Sender: FDA-Public Use
  Company Number: PHHY2012AU086548

PATIENT
  Age: 82 Year
  Sex: Female

DRUGS (10)
  1. ACLASTA [Suspect]
     Dosage: 5 mg
     Route: 042
     Dates: start: 20101012
  2. ACLASTA [Suspect]
     Dosage: 5 mg
     Route: 042
     Dates: start: 20110927
  3. ACLASTA [Suspect]
     Dosage: 5 mg, UNK
     Route: 042
  4. AVANZA [Concomitant]
     Indication: SLEEP DISORDER
     Dosage: 7.5 mg, UNK
     Route: 048
  5. CARVEDILOL [Concomitant]
     Indication: CARDIAC DISORDER
     Dosage: 18.75 mg, BID
     Route: 048
  6. FRUSEMIDE [Concomitant]
     Indication: CARDIAC DISORDER
     Dosage: 10 mg, UNK
     Route: 048
  7. ESOMEPRAZOLE [Concomitant]
     Indication: REFLUX GASTRITIS
     Dosage: 20 mg, UNK
     Route: 048
  8. LISINOPRIL [Concomitant]
     Indication: CARDIAC DISORDER
     Dosage: 5 mg, UNK
     Route: 048
  9. COUMADINE [Concomitant]
     Dosage: 3 mg, UNK
  10. NEXIAM [Concomitant]
     Dosage: UNK

REACTIONS (2)
  - Fall [Recovering/Resolving]
  - Pelvic fracture [Recovering/Resolving]
